FAERS Safety Report 20313030 (Version 1)
Quarter: 2022Q1

REPORT INFORMATION
  Report Type: Spontaneous
  Country: OM (occurrence: OM)
  Receive Date: 20220109
  Receipt Date: 20220109
  Transmission Date: 20220424
  Serious: Yes (Hospitalization, Other)
  Sender: FDA-Public Use
  Company Number: OM-LUPIN PHARMACEUTICALS INC.-2021-26523

PATIENT
  Age: 46 Year
  Sex: Male

DRUGS (5)
  1. CEFTRIAXONE [Suspect]
     Active Substance: CEFTRIAXONE
     Indication: COVID-19
     Dosage: UNK
     Route: 042
     Dates: start: 2020
  2. AZITHROMYCIN [Suspect]
     Active Substance: AZITHROMYCIN
     Indication: COVID-19
     Dosage: UNK
     Route: 042
     Dates: start: 2020
  3. HYDROXYCHLOROQUINE [Suspect]
     Active Substance: HYDROXYCHLOROQUINE
     Indication: COVID-19
     Dosage: 600 MILLIGRAM, BID
     Route: 065
     Dates: start: 2020
  4. OLANZAPINE [Suspect]
     Active Substance: OLANZAPINE
     Indication: Acute psychosis
     Dosage: 5 MILLIGRAM, QD (DOSE TO BE ADMINISTERED AT BEDTIME)
     Route: 048
     Dates: start: 2020
  5. DEXAMETHASONE [Suspect]
     Active Substance: DEXAMETHASONE
     Indication: COVID-19
     Dosage: 8 MILLIGRAM, QD
     Route: 065
     Dates: start: 2020

REACTIONS (4)
  - Acute psychosis [Recovered/Resolved]
  - Discomfort [Unknown]
  - Laziness [Unknown]
  - Off label use [Unknown]

NARRATIVE: CASE EVENT DATE: 20200101
